FAERS Safety Report 4880640-6 (Version None)
Quarter: 2005Q4

REPORT INFORMATION
  Report Type: 
  Country: None (occurrence: None)
  Receive Date: 20051223
  Receipt Date: 20051122
  Transmission Date: 20060501
  Serious: No
  Sender: FDA-Public Use
  Company Number: 05P-163-0317886-00

PATIENT
  Age: 50 Year
  Sex: Female

DRUGS (1)
  1. HUMIRA [Suspect]
     Indication: RHEUMATOID ARTHRITIS
     Dosage: 40 MG, SUBCUTANEOUS
     Route: 058

REACTIONS (5)
  - ABDOMINAL PAIN UPPER [None]
  - KIDNEY ENLARGEMENT [None]
  - MASS [None]
  - PAIN [None]
  - SKIN LESION [None]
